FAERS Safety Report 8529898-2 (Version None)
Quarter: 2012Q3

REPORT INFORMATION
  Report Type: 
  Country: None (occurrence: None)
  Receive Date: 20120723
  Receipt Date: 20120717
  Transmission Date: 20120928
  Serious: Yes (Death, Other)
  Sender: FDA-Public Use
  Company Number: US-CELGENEUS-163-21880-12061804

PATIENT
  Sex: Male
  Weight: 78.996 kg

DRUGS (9)
  1. FENTORA [Concomitant]
     Dosage: 100 MICROGRAM
     Route: 065
  2. EFFEXOR XR [Concomitant]
     Dosage: 75 MILLIGRAM
     Route: 065
  3. ASPIRIN [Concomitant]
     Dosage: 81 MILLIGRAM
     Route: 065
  4. TOPROL-XL [Concomitant]
     Dosage: 50 MILLIGRAM
     Route: 065
  5. PERCOCET [Concomitant]
     Dosage: 10/650
     Route: 065
  6. REVLIMID [Suspect]
     Indication: MULTIPLE MYELOMA
     Dosage: 10 MILLIGRAM
     Route: 048
     Dates: start: 20110829, end: 20120509
  7. ZOCOR [Concomitant]
     Dosage: 40 MILLIGRAM
     Route: 065
  8. AVAPRO [Concomitant]
     Dosage: 300 MILLIGRAM
     Route: 065
  9. FOSAMAX [Concomitant]
     Dosage: 70 MILLIGRAM
     Route: 065

REACTIONS (8)
  - DYSPNOEA EXERTIONAL [None]
  - GAIT DISTURBANCE [None]
  - HYPOTENSION [None]
  - FATIGUE [None]
  - SEPSIS [None]
  - PLEURAL EFFUSION [None]
  - DEATH [None]
  - CHRONIC OBSTRUCTIVE PULMONARY DISEASE [None]
